FAERS Safety Report 8240088-3 (Version None)
Quarter: 2012Q1

REPORT INFORMATION
  Report Type: 
  Country: None (occurrence: None)
  Receive Date: 20120309
  Receipt Date: 20100809
  Transmission Date: 20120608
  Serious: Yes (Other)
  Sender: FDA-Public Use
  Company Number: PHHY2010US47461

PATIENT
  Age: 50 Year
  Sex: Female

DRUGS (9)
  1. CLARINEX /DEN/ (LORATADINE, PSEUDOEPHEDRINE SULFATE) [Concomitant]
  2. CELEBREX [Concomitant]
  3. TRAMADOL HCL [Concomitant]
  4. CLONIDINE [Concomitant]
  5. EXTAVIA [Suspect]
     Indication: MULTIPLE SCLEROSIS
     Dosage: SUBCUTANEOUS ; SUBCUTANEOUS
     Route: 058
     Dates: start: 20100101, end: 20100401
  6. EXTAVIA [Suspect]
     Indication: MULTIPLE SCLEROSIS
     Dosage: SUBCUTANEOUS ; SUBCUTANEOUS
     Route: 058
     Dates: end: 20100601
  7. SYNTHROID [Concomitant]
  8. NEXIUM [Concomitant]
  9. NEURONTIN [Concomitant]

REACTIONS (5)
  - INFLUENZA LIKE ILLNESS [None]
  - DEPRESSION [None]
  - LIVER FUNCTION TEST ABNORMAL [None]
  - FEELING ABNORMAL [None]
  - MALAISE [None]
